FAERS Safety Report 6565957-1 (Version None)
Quarter: 2010Q1

REPORT INFORMATION
  Report Type: 
  Country: None (occurrence: None)
  Receive Date: 20100129
  Receipt Date: 20100129
  Transmission Date: 20100710
  Serious: Yes (Hospitalization)
  Sender: FDA-Public Use
  Company Number: None

PATIENT
  Sex: Male
  Weight: 71.8 kg

DRUGS (3)
  1. BEVACIZUMAB (RHUMAB VEGF) [Suspect]
     Dosage: 1138 MG
     Dates: end: 20100112
  2. CARBOPLATIN [Suspect]
     Dosage: 553 MG
     Dates: end: 20100112
  3. TAXOL [Suspect]
     Dosage: 390 MG
     Dates: end: 20100112

REACTIONS (15)
  - ATRIAL FIBRILLATION [None]
  - BODY TEMPERATURE INCREASED [None]
  - CHAPPED LIPS [None]
  - DECREASED APPETITE [None]
  - DRY MOUTH [None]
  - EJECTION FRACTION DECREASED [None]
  - FEELING ABNORMAL [None]
  - HAEMATOCRIT DECREASED [None]
  - HAEMOGLOBIN DECREASED [None]
  - HYPOTENSION [None]
  - NEUTROPHIL COUNT DECREASED [None]
  - PALLOR [None]
  - PULSE ABSENT [None]
  - SINUS ARRHYTHMIA [None]
  - SINUS TACHYCARDIA [None]
